FAERS Safety Report 10256586 (Version 3)
Quarter: 2014Q3

REPORT INFORMATION
  Report Type: Spontaneous
  Country: TH (occurrence: TH)
  Receive Date: 20140624
  Receipt Date: 20140721
  Transmission Date: 20150326
  Serious: Yes (Hospitalization)
  Sender: FDA-Public Use
  Company Number: TH-B.I. PHARMACEUTICALS,INC./RIDGEFIELD-2014-BI-28247RT

PATIENT
  Age: 79 Year
  Sex: Female

DRUGS (1)
  1. TRADJENTA [Suspect]
     Active Substance: LINAGLIPTIN
     Indication: TYPE 1 DIABETES MELLITUS
     Dosage: 5 MG
     Route: 048
     Dates: start: 20140508, end: 20140515

REACTIONS (4)
  - Sepsis [Unknown]
  - Jaundice [Unknown]
  - Hepatic enzyme increased [Unknown]
  - Hepatic encephalopathy [Unknown]
